FAERS Safety Report 5565763-0 (Version None)
Quarter: 2007Q4

REPORT INFORMATION
  Report Type: 
  Country: None (occurrence: None)
  Receive Date: 20071218
  Receipt Date: 20071217
  Transmission Date: 20080405
  Serious: Yes (Other)
  Sender: FDA-Public Use
  Company Number: ES-MERCK-0711ESP00017

PATIENT
  Age: 60 Year
  Sex: Male

DRUGS (15)
  1. INVANZ [Suspect]
     Indication: CELLULITIS
     Route: 042
     Dates: start: 20070428, end: 20070507
  2. CLINORIL [Suspect]
     Route: 048
     Dates: start: 20070427, end: 20070428
  3. CIPRALEX [Concomitant]
     Indication: DEPRESSION
     Route: 048
     Dates: start: 20060501, end: 20070502
  4. LEVOTHROID [Concomitant]
     Indication: HYPOTHYROIDISM
     Route: 048
     Dates: start: 20020401
  5. ZYLORIC [Concomitant]
     Indication: HYPERURICAEMIA
     Route: 048
     Dates: start: 20031201
  6. ZANTAC [Concomitant]
     Indication: PROPHYLAXIS AGAINST GASTROINTESTINAL ULCER
     Route: 048
     Dates: start: 20010801, end: 20070507
  7. RIVOTRIL [Concomitant]
     Indication: PAIN
     Route: 048
     Dates: start: 20010801, end: 20070502
  8. ROCALTROL [Concomitant]
     Indication: HYPERURICAEMIA
     Route: 048
     Dates: start: 20030501
  9. URBASON [Concomitant]
     Indication: PROPHYLAXIS AGAINST TRANSPLANT REJECTION
     Route: 065
     Dates: start: 19960204
  10. SANDIMMUNE [Concomitant]
     Indication: PROPHYLAXIS AGAINST TRANSPLANT REJECTION
     Route: 065
     Dates: start: 19960204
  11. ADALAT [Concomitant]
     Indication: HYPERTENSION
     Route: 065
     Dates: start: 20010801
  12. NOLOTIL [Concomitant]
     Route: 065
  13. ACETAMINOPHEN [Concomitant]
     Route: 065
  14. ENOXAPARIN SODIUM [Concomitant]
     Route: 065
  15. SEGURIL [Concomitant]
     Indication: DIURETIC THERAPY
     Route: 065
     Dates: start: 20010801

REACTIONS (1)
  - TOXIC ENCEPHALOPATHY [None]
